FAERS Safety Report 15689778 (Version 1)
Quarter: 2018Q4

REPORT INFORMATION
  Report Type: Spontaneous
  Country: HK (occurrence: HK)
  Receive Date: 20181205
  Receipt Date: 20181205
  Transmission Date: 20190205
  Serious: Yes (Other)
  Sender: FDA-Public Use
  Company Number: HK-SAKK-2018SA324289AA

PATIENT
  Age: 61 Year
  Sex: Male
  Weight: 51 kg

DRUGS (17)
  1. METOPROLOL SUCCINATE. [Suspect]
     Active Substance: METOPROLOL SUCCINATE
     Indication: TUBERCULOSIS GASTROINTESTINAL
     Dosage: 25 MG, QD
     Route: 048
  2. TAMSULOSIN HYDROCHLORIDE. [Suspect]
     Active Substance: TAMSULOSIN HYDROCHLORIDE
     Indication: TUBERCULOSIS GASTROINTESTINAL
  3. TIOTROPIUM BROMIDE [Suspect]
     Active Substance: TIOTROPIUM BROMIDE
  4. LINAGLIPTIN [Suspect]
     Active Substance: LINAGLIPTIN
     Indication: TUBERCULOSIS GASTROINTESTINAL
     Dosage: 5 MG, QD
     Route: 048
  5. LISINOPRIL. [Suspect]
     Active Substance: LISINOPRIL
     Indication: TUBERCULOSIS GASTROINTESTINAL
     Dosage: 10 MG, QD
     Route: 048
  6. EPLERENONE. [Suspect]
     Active Substance: EPLERENONE
     Indication: TUBERCULOSIS GASTROINTESTINAL
     Dosage: 25 MG, QD
     Route: 048
  7. ETHAMBUTOL [Suspect]
     Active Substance: ETHAMBUTOL HYDROCHLORIDE
     Indication: TUBERCULOSIS
  8. IVABRADINE HYDROCHLORIDE [Suspect]
     Active Substance: IVABRADINE HYDROCHLORIDE
     Indication: TUBERCULOSIS GASTROINTESTINAL
     Dosage: 7.5 MG, BID
     Route: 048
  9. ATORVASTATIN [Suspect]
     Active Substance: ATORVASTATIN
     Indication: TUBERCULOSIS GASTROINTESTINAL
     Dosage: 10 MG, QD
     Route: 048
  10. FUROSEMIDE. [Suspect]
     Active Substance: FUROSEMIDE
     Dosage: 40 MG, BID
     Route: 042
  11. LANSOPRAZOLE. [Suspect]
     Active Substance: LANSOPRAZOLE
  12. RIFAMPICIN [Suspect]
     Active Substance: RIFAMPIN
     Indication: TUBERCULOSIS
  13. LISINOPRIL. [Suspect]
     Active Substance: LISINOPRIL
     Dosage: 40 MG, QD
     Route: 048
  14. ISONIAZID. [Suspect]
     Active Substance: ISONIAZID
     Indication: TUBERCULOSIS
  15. PYRAZINAMIDE. [Suspect]
     Active Substance: PYRAZINAMIDE
     Indication: TUBERCULOSIS
  16. PYRIDOXINE [Suspect]
     Active Substance: PYRIDOXINE
     Indication: TUBERCULOSIS
  17. ACETYLSALICYLIC ACID [Suspect]
     Active Substance: ASPIRIN
     Indication: TUBERCULOSIS GASTROINTESTINAL

REACTIONS (10)
  - Cachexia [Unknown]
  - Dizziness [Recovered/Resolved]
  - Asthenia [Unknown]
  - Mitral valve incompetence [Unknown]
  - Peripheral swelling [Unknown]
  - Aortic valve incompetence [Unknown]
  - Dyspnoea [Unknown]
  - Rales [Unknown]
  - Hypotension [Recovering/Resolving]
  - Oedema peripheral [Unknown]
